FAERS Safety Report 10097697 (Version 1)
Quarter: 2014Q2

REPORT INFORMATION
  Report Type: Spontaneous
  Country: US (occurrence: US)
  Receive Date: 20140423
  Receipt Date: 20140423
  Transmission Date: 20141212
  Serious: No
  Sender: FDA-Public Use
  Company Number: US-BIOGENIDEC-2014BI034519

PATIENT
  Age: 64 Year
  Sex: Female

DRUGS (5)
  1. TECFIDERA [Suspect]
     Indication: MULTIPLE SCLEROSIS
     Route: 048
     Dates: start: 20140324
  2. CARVEDILOL [Concomitant]
  3. CHLORTHALIDONE [Concomitant]
  4. SIMVASTATIN [Concomitant]
  5. TRAMADOL HCL [Concomitant]

REACTIONS (2)
  - Peripheral swelling [Unknown]
  - Flushing [Unknown]
